FAERS Safety Report 9052724 (Version 1)
Quarter: 2013Q1

REPORT INFORMATION
  Report Type: Spontaneous
  Country: US (occurrence: US)
  Receive Date: 20130207
  Receipt Date: 20130207
  Transmission Date: 20140127
  Serious: Yes (Other)
  Sender: FDA-Public Use
  Company Number: US-ROCHE-1184765

PATIENT
  Sex: Female

DRUGS (4)
  1. AVASTIN [Suspect]
     Indication: PRODUCT USED FOR UNKNOWN INDICATION
     Route: 065
  2. GEMZAR [Concomitant]
     Route: 065
  3. FERRLECIT [Concomitant]
     Route: 065
  4. PRE-MEDICATIONS (UNK INGREDIENTS) [Concomitant]
     Route: 048

REACTIONS (5)
  - Convulsion [Unknown]
  - Blood pressure decreased [Unknown]
  - Heart rate decreased [Unknown]
  - Mental impairment [Unknown]
  - Confusional state [Unknown]
